FAERS Safety Report 7890712-X (Version None)
Quarter: 2011Q4

REPORT INFORMATION
  Report Type: 
  Country: None (occurrence: None)
  Receive Date: 20111103
  Receipt Date: 20110725
  Transmission Date: 20120403
  Serious: Yes (Other)
  Sender: FDA-Public Use
  Company Number: US-AMGEN-USASP2011037728

PATIENT
  Age: 57 Year
  Sex: Female

DRUGS (2)
  1. ENBREL [Suspect]
     Indication: RHEUMATOID ARTHRITIS
     Dosage: 50 MG, QWK
     Dates: start: 20110716, end: 20110701
  2. METHOTREXATE [Concomitant]

REACTIONS (7)
  - INJECTION SITE SWELLING [None]
  - INJECTION SITE INDURATION [None]
  - INJECTION SITE VESICLES [None]
  - INJECTION SITE EXFOLIATION [None]
  - INJECTION SITE PAIN [None]
  - INJECTION SITE EROSION [None]
  - INJECTION SITE ERYTHEMA [None]
